FAERS Safety Report 7939316-0 (Version None)
Quarter: 2011Q4

REPORT INFORMATION
  Report Type: 
  Country: None (occurrence: None)
  Receive Date: 20111125
  Receipt Date: 20111019
  Transmission Date: 20120403
  Serious: No
  Sender: FDA-Public Use
  Company Number: US-BAYER-2011-021566

PATIENT
  Sex: Female

DRUGS (2)
  1. PREPARATION H [GLYCEROL,PETROLATUM,PHENYLEPHRINE HYDROCHLORIDE,SHA [Concomitant]
  2. MIRENA [Suspect]
     Dosage: 20 MCG/24HR, CONT
     Route: 015
     Dates: start: 20101021, end: 20101207

REACTIONS (4)
  - MUSCLE SPASMS [None]
  - DISCOMFORT [None]
  - ORGASM ABNORMAL [None]
  - DYSPAREUNIA [None]
